FAERS Safety Report 5853037-X (Version None)
Quarter: 2008Q3

REPORT INFORMATION
  Report Type: 
  Country: None (occurrence: None)
  Receive Date: 20080821
  Receipt Date: 20080818
  Transmission Date: 20090109
  Serious: Yes (Other)
  Sender: FDA-Public Use
  Company Number: US-BAYER-200817916GPV

PATIENT
  Age: 62 Year
  Sex: Male

DRUGS (18)
  1. SORAFENIB [Suspect]
     Indication: RENAL CELL CARCINOMA
     Route: 048
     Dates: start: 20080406
  2. SORAFENIB [Suspect]
     Route: 048
     Dates: start: 20071120, end: 20080312
  3. AMG 386 OR PLACEBO [Suspect]
     Indication: RENAL CELL CARCINOMA
     Route: 042
     Dates: start: 20080401
  4. AMG 386 OR PLACEBO [Suspect]
     Route: 042
     Dates: start: 20071120, end: 20080311
  5. ANTIHYPERTENSIVES [Concomitant]
     Indication: HYPERTENSION
     Route: 065
  6. GLYBURIDE [Concomitant]
     Indication: DRUG USE FOR UNKNOWN INDICATION
  7. ALLOPURINOL [Concomitant]
     Indication: DRUG USE FOR UNKNOWN INDICATION
     Route: 065
  8. RAMIPRIL [Concomitant]
     Indication: HYPERTENSION
     Dosage: TOTAL DAILY DOSE: 10 MG  UNIT DOSE: 10 MG
     Route: 048
  9. NICARDIPINE HYDROCHLORIDE [Concomitant]
     Indication: HYPERTENSION
     Route: 048
     Dates: start: 20071121
  10. LOSARTAN POTASSIUM [Concomitant]
     Indication: HYPERTENSION
     Route: 048
     Dates: start: 20071122, end: 20080312
  11. LACTULOSE [Concomitant]
     Indication: DRUG USE FOR UNKNOWN INDICATION
     Route: 048
     Dates: start: 20071216, end: 20080122
  12. CLONIDINE [Concomitant]
     Indication: DRUG USE FOR UNKNOWN INDICATION
     Route: 048
     Dates: start: 20080215, end: 20080312
  13. MANIDIPINE [Concomitant]
     Indication: HYPERTENSION
     Route: 065
  14. LOSARTAN POTASSIUM WITH HYDROCHLOROTHIAZIDE [Concomitant]
     Indication: HYPERTENSION
     Route: 065
  15. URAPIDIL [Concomitant]
     Indication: HYPERTENSION
     Route: 065
  16. LERCANIDIPINE HYDROCHLORIDE [Concomitant]
     Indication: HYPERTENSION
     Route: 065
  17. CELIPROLOL [Concomitant]
     Indication: HYPERTENSION
     Route: 065
  18. FUROSEMIDE [Concomitant]
     Indication: DRUG USE FOR UNKNOWN INDICATION
     Route: 065

REACTIONS (1)
  - VISUAL ACUITY REDUCED [None]
